FAERS Safety Report 5389817-7 (Version None)
Quarter: 2007Q3

REPORT INFORMATION
  Report Type: 
  Country: None (occurrence: None)
  Receive Date: 20070718
  Receipt Date: 20070709
  Transmission Date: 20080115
  Serious: Yes (Other)
  Sender: FDA-Public Use
  Company Number: PHEH2007US06474

PATIENT
  Sex: Male

DRUGS (2)
  1. CLOZARIL [Suspect]
     Indication: AFFECTIVE DISORDER
     Dosage: 300 MG, QD
     Dates: start: 20030101
  2. CLOZARIL [Suspect]
     Dosage: 900 MG, QD

REACTIONS (1)
  - CHRONIC LYMPHOCYTIC LEUKAEMIA [None]
